FAERS Safety Report 7299527-7 (Version None)
Quarter: 2011Q1

REPORT INFORMATION
  Report Type: 
  Country: None (occurrence: None)
  Receive Date: 20110217
  Receipt Date: 20110207
  Transmission Date: 20110831
  Serious: Yes (Hospitalization, Other)
  Sender: FDA-Public Use
  Company Number: US-ELI_LILLY_AND_COMPANY-US201012002948

PATIENT
  Age: 41 Year
  Sex: Female

DRUGS (7)
  1. CYMBALTA [Suspect]
     Indication: BIPOLAR I DISORDER
     Dosage: 60 MG, DAILY (1/D)
     Dates: start: 20050101
  2. LAMICTAL [Concomitant]
     Dosage: 200 MEQ, DAILY (1/D)
  3. PREMARIN [Concomitant]
     Dosage: 0.2 MG, UNK
  4. NUVIGIL [Concomitant]
     Dosage: 150 MG, AS NEEDED
  5. CLONAZEPAM [Concomitant]
     Dosage: 1 MG, EACH EVENING
  6. METFORMIN [Concomitant]
     Dosage: 500 MG, DAILY (1/D)
  7. OXYCODONE [Concomitant]
     Indication: PAIN
     Dosage: 15 MG, AS NEEDED

REACTIONS (9)
  - INTERVERTEBRAL DISC PROTRUSION [None]
  - POST PROCEDURAL SWELLING [None]
  - DIABETES MELLITUS [None]
  - RAPID EYE MOVEMENTS SLEEP ABNORMAL [None]
  - OFF LABEL USE [None]
  - HYPERSOMNIA [None]
  - INCORRECT STORAGE OF DRUG [None]
  - ABNORMAL DREAMS [None]
  - MIGRAINE [None]
